FAERS Safety Report 5875919-5 (Version None)
Quarter: 2008Q3

REPORT INFORMATION
  Report Type: 
  Country: None (occurrence: None)
  Receive Date: 20080910
  Receipt Date: 20080905
  Transmission Date: 20090109
  Serious: Yes (Life-Threatening)
  Sender: FDA-Public Use
  Company Number: JP-SP-2008-02840

PATIENT
  Age: 49 Year
  Sex: Female

DRUGS (1)
  1. IMMUCYST [Suspect]
     Indication: BLADDER CANCER RECURRENT
     Route: 043
     Dates: start: 20080902, end: 20080902

REACTIONS (4)
  - BOVINE TUBERCULOSIS [None]
  - CHEST X-RAY ABNORMAL [None]
  - MALAISE [None]
  - PYREXIA [None]
